FAERS Safety Report 7914873-9 (Version None)
Quarter: 2011Q4

REPORT INFORMATION
  Report Type: 
  Country: None (occurrence: None)
  Receive Date: 20111115
  Receipt Date: 20111109
  Transmission Date: 20120403
  Serious: Yes (Death)
  Sender: FDA-Public Use
  Company Number: CA-ROCHE-1011458

PATIENT
  Sex: Male

DRUGS (5)
  1. PERINDOPRIL ERBUMINE [Concomitant]
  2. ASPIRIN [Concomitant]
  3. XELODA [Suspect]
     Indication: COLORECTAL CANCER METASTATIC
     Route: 042
  4. FISH OIL [Concomitant]
  5. VITAMIN B-12 [Concomitant]

REACTIONS (1)
  - DEATH [None]
